FAERS Safety Report 24691515 (Version 3)
Quarter: 2025Q4

REPORT INFORMATION
  Report Type: Spontaneous
  Country: US (occurrence: US)
  Receive Date: 20241203
  Receipt Date: 20251009
  Transmission Date: 20260118
  Serious: Yes (Life-Threatening, Hospitalization, Other)
  Sender: PFIZER
  Company Number: US-PFIZER INC-PV202400153969

PATIENT
  Age: 20 Month
  Sex: Female

DRUGS (28)
  1. INFLIXIMAB [Suspect]
     Active Substance: INFLIXIMAB
     Indication: Juvenile idiopathic arthritis
     Dosage: UNK
  2. INFLIXIMAB [Suspect]
     Active Substance: INFLIXIMAB
     Indication: Haemophagocytic lymphohistiocytosis
  3. INFLIXIMAB [Suspect]
     Active Substance: INFLIXIMAB
     Indication: Interstitial lung disease
  4. METHYLPREDNISOLONE SODIUM SUCCINATE [Suspect]
     Active Substance: METHYLPREDNISOLONE SODIUM SUCCINATE
     Indication: Juvenile idiopathic arthritis
     Dosage: UNK
     Route: 042
  5. METHYLPREDNISOLONE SODIUM SUCCINATE [Suspect]
     Active Substance: METHYLPREDNISOLONE SODIUM SUCCINATE
     Indication: Haemophagocytic lymphohistiocytosis
  6. METHYLPREDNISOLONE SODIUM SUCCINATE [Suspect]
     Active Substance: METHYLPREDNISOLONE SODIUM SUCCINATE
     Indication: Interstitial lung disease
  7. TOFACITINIB CITRATE [Suspect]
     Active Substance: TOFACITINIB CITRATE
     Indication: Juvenile idiopathic arthritis
     Dosage: UNK
  8. TOFACITINIB CITRATE [Suspect]
     Active Substance: TOFACITINIB CITRATE
     Indication: Haemophagocytic lymphohistiocytosis
  9. TOFACITINIB CITRATE [Suspect]
     Active Substance: TOFACITINIB CITRATE
     Indication: Interstitial lung disease
  10. JAKAFI [Suspect]
     Active Substance: RUXOLITINIB
     Indication: Still^s disease
     Dosage: UNK
  11. JAKAFI [Suspect]
     Active Substance: RUXOLITINIB
     Indication: Juvenile idiopathic arthritis
  12. JAKAFI [Suspect]
     Active Substance: RUXOLITINIB
     Indication: Haemophagocytic lymphohistiocytosis
  13. JAKAFI [Suspect]
     Active Substance: RUXOLITINIB
     Indication: Interstitial lung disease
  14. PREDNISOLONE ACETATE [Suspect]
     Active Substance: PREDNISOLONE ACETATE
     Indication: Juvenile idiopathic arthritis
     Dosage: UNK
  15. PREDNISOLONE ACETATE [Suspect]
     Active Substance: PREDNISOLONE ACETATE
     Indication: Haemophagocytic lymphohistiocytosis
  16. PREDNISOLONE ACETATE [Suspect]
     Active Substance: PREDNISOLONE ACETATE
     Indication: Interstitial lung disease
  17. CANAKINUMAB [Suspect]
     Active Substance: CANAKINUMAB
     Indication: Juvenile idiopathic arthritis
     Dosage: UNK
  18. CANAKINUMAB [Suspect]
     Active Substance: CANAKINUMAB
     Indication: Haemophagocytic lymphohistiocytosis
  19. CANAKINUMAB [Suspect]
     Active Substance: CANAKINUMAB
     Indication: Interstitial lung disease
  20. ANAKINRA [Suspect]
     Active Substance: ANAKINRA
     Indication: Juvenile idiopathic arthritis
     Dosage: UNK
  21. ANAKINRA [Suspect]
     Active Substance: ANAKINRA
     Indication: Haemophagocytic lymphohistiocytosis
  22. ANAKINRA [Suspect]
     Active Substance: ANAKINRA
     Indication: Interstitial lung disease
  23. TACROLIMUS [Suspect]
     Active Substance: TACROLIMUS
     Indication: Juvenile idiopathic arthritis
     Dosage: UNK
  24. TACROLIMUS [Suspect]
     Active Substance: TACROLIMUS
     Indication: Haemophagocytic lymphohistiocytosis
  25. TACROLIMUS [Suspect]
     Active Substance: TACROLIMUS
     Indication: Interstitial lung disease
  26. ABATACEPT [Suspect]
     Active Substance: ABATACEPT
     Indication: Juvenile idiopathic arthritis
     Dosage: UNK
  27. ABATACEPT [Suspect]
     Active Substance: ABATACEPT
     Indication: Haemophagocytic lymphohistiocytosis
  28. ABATACEPT [Suspect]
     Active Substance: ABATACEPT
     Indication: Interstitial lung disease

REACTIONS (5)
  - Haemophagocytic lymphohistiocytosis [Not Recovered/Not Resolved]
  - Interstitial lung disease [Not Recovered/Not Resolved]
  - Drug ineffective [Unknown]
  - Off label use [Unknown]
  - Off label use [Unknown]
